FAERS Safety Report 16403282 (Version 1)
Quarter: 2019Q2

REPORT INFORMATION
  Report Type: Spontaneous
  Country: IT (occurrence: IT)
  Receive Date: 20190607
  Receipt Date: 20190607
  Transmission Date: 20190711
  Serious: Yes (Hospitalization)
  Sender: FDA-Public Use
  Company Number: IT-TEVA-2019-IT-1059443

PATIENT
  Age: 67 Year
  Sex: Female

DRUGS (7)
  1. SINTROM [Concomitant]
     Active Substance: ACENOCOUMAROL
     Route: 048
  2. EUTIROX 100 MICROGRAMMI COMPRESSE [Concomitant]
     Active Substance: LEVOTHYROXINE SODIUM
     Route: 048
  3. ISOPTIN 80 MG COMPRESSE RIVESTITE CON FILM [Concomitant]
     Route: 048
  4. CALCIUM SANDOZ [Concomitant]
     Active Substance: CALCIUM
     Route: 048
  5. BRUFEN 600 MG GRANULATO EFFERVESCENTE [Concomitant]
     Active Substance: IBUPROFEN
     Route: 048
     Dates: start: 20190520, end: 20190520
  6. PROLIA 60 MG SOLUTION FOR INJECTION IN A PRE-FILLED SYRINGE [Concomitant]
     Route: 058
  7. ENTECAVIR TEVA [Suspect]
     Active Substance: ENTECAVIR
     Indication: CHRONIC HEPATITIS
     Route: 048
     Dates: start: 20190101, end: 20190520

REACTIONS (1)
  - Laryngeal oedema [Unknown]

NARRATIVE: CASE EVENT DATE: 20190520
